FAERS Safety Report 7967990-1 (Version None)
Quarter: 2011Q4

REPORT INFORMATION
  Report Type: 
  Country: None (occurrence: None)
  Receive Date: 20111208
  Receipt Date: 20111208
  Transmission Date: 20120403
  Serious: Yes (Other)
  Sender: FDA-Public Use
  Company Number: None

PATIENT
  Sex: Male
  Weight: 172.3669 kg

DRUGS (1)
  1. LATANOPROST [Suspect]
     Indication: OPEN ANGLE GLAUCOMA
     Dosage: 1 DROP QHS TOPICAL 060
     Route: 061
     Dates: start: 20110523, end: 20111102

REACTIONS (1)
  - INTRAOCULAR PRESSURE INCREASED [None]
